FAERS Safety Report 5105478-6 (Version None)
Quarter: 2006Q3

REPORT INFORMATION
  Report Type: 
  Country: None (occurrence: None)
  Receive Date: 20060915
  Receipt Date: 20060907
  Transmission Date: 20061208
  Serious: Yes (Death, Other)
  Sender: FDA-Public Use
  Company Number: US-JNJFOC-20060901607

PATIENT
  Sex: Male

DRUGS (6)
  1. REMICADE [Suspect]
     Indication: RHEUMATOID ARTHRITIS
     Route: 042
  2. VIOXX [Concomitant]
  3. FLOMAX [Concomitant]
  4. MULTIVITAMIN [Concomitant]
  5. METHOTREXATE [Concomitant]
  6. FOLIC ACID [Concomitant]

REACTIONS (7)
  - ABNORMAL BEHAVIOUR [None]
  - DEATH [None]
  - EMPHYSEMA [None]
  - ESSENTIAL HYPERTENSION [None]
  - MENTAL DISORDER [None]
  - RESPIRATORY TRACT CARCINOMA IN SITU [None]
  - RHEUMATOID ARTHRITIS [None]
